FAERS Safety Report 9518510 (Version 1)
Quarter: 2013Q3

REPORT INFORMATION
  Report Type: Spontaneous
  Country: US (occurrence: None)
  Receive Date: 20130910
  Receipt Date: 20130910
  Transmission Date: 20140515
  Serious: Yes (Hospitalization)
  Sender: FDA-Public Use
  Company Number: 2013P1018922

PATIENT
  Age: 99 Year
  Sex: Female
  Weight: 49.9 kg

DRUGS (1)
  1. ATIVAN [Suspect]
     Indication: NUCLEAR MAGNETIC RESONANCE IMAGING
     Route: 042
     Dates: start: 20130814, end: 20130814

REACTIONS (2)
  - Coma [None]
  - Overdose [None]
